FAERS Safety Report 26120713 (Version 1)
Quarter: 2025Q4

REPORT INFORMATION
  Report Type: Spontaneous
  Country: CN (occurrence: CN)
  Receive Date: 20251204
  Receipt Date: 20251204
  Transmission Date: 20260118
  Serious: Yes (Other)
  Sender: SANOFI AVENTIS
  Company Number: CN-SA-2025SA359775

PATIENT
  Age: 52 Year
  Sex: Female
  Weight: 56 kg

DRUGS (5)
  1. FABRAZYME [Suspect]
     Active Substance: AGALSIDASE BETA
     Indication: Neoplasm
     Dosage: 491 MG, QD
     Route: 041
     Dates: start: 20251106, end: 20251106
  2. RALTITREXED [Suspect]
     Active Substance: RALTITREXED
     Indication: Neoplasm
     Dosage: 4.98 MG, QD
     Route: 041
     Dates: start: 20251106, end: 20251106
  3. SODIUM CHLORIDE [Concomitant]
     Active Substance: SODIUM CHLORIDE
     Indication: Vehicle solution use
     Dosage: 100 ML, QD
     Route: 041
     Dates: start: 20251106, end: 20251106
  4. STERILE WATER FOR INJECTION [Concomitant]
     Active Substance: WATER
     Indication: Vehicle solution use
     Dosage: 12 ML, QD
     Route: 041
     Dates: start: 20251106, end: 20251106
  5. BEVACIZUMAB [Concomitant]
     Active Substance: BEVACIZUMAB
     Dosage: 491 MG, QD
     Route: 041
     Dates: start: 20251106

REACTIONS (2)
  - Neutrophil count decreased [Recovering/Resolving]
  - Product use in unapproved indication [Unknown]

NARRATIVE: CASE EVENT DATE: 20251106
